FAERS Safety Report 9822394 (Version 2)
Quarter: 2014Q1

REPORT INFORMATION
  Report Type: Report from Study
  Country: US (occurrence: US)
  Receive Date: 20140116
  Receipt Date: 20140227
  Transmission Date: 20141002
  Serious: Yes (Life-Threatening, Hospitalization)
  Sender: FDA-Public Use
  Company Number: US-JNJFOC-20140104169

PATIENT
  Age: 59 Year
  Sex: Female

DRUGS (5)
  1. NUCYNTA [Suspect]
     Indication: PAIN
     Route: 065
     Dates: start: 20130922, end: 20130922
  2. SERTRALINE [Suspect]
     Indication: PRODUCT USED FOR UNKNOWN INDICATION
     Route: 048
  3. DULOXETINE [Suspect]
     Indication: PRODUCT USED FOR UNKNOWN INDICATION
     Route: 048
  4. DOXEPIN [Suspect]
     Indication: PRODUCT USED FOR UNKNOWN INDICATION
     Route: 048
  5. CYCLOBENZAPRINE [Concomitant]
     Indication: PRODUCT USED FOR UNKNOWN INDICATION
     Route: 048

REACTIONS (12)
  - Akathisia [Recovered/Resolved]
  - Torticollis [Recovered/Resolved]
  - Grimacing [Recovered/Resolved]
  - Dyskinesia [Recovered/Resolved]
  - Dystonia [Unknown]
  - Fibromyalgia [Unknown]
  - Serotonin syndrome [Unknown]
  - Hyperthermia [Recovered/Resolved]
  - Hypertension [Recovered/Resolved]
  - Tachycardia [Unknown]
  - Arthralgia [Unknown]
  - Muscle spasms [Unknown]
